FAERS Safety Report 5013461-4 (Version None)
Quarter: 2006Q2

REPORT INFORMATION
  Report Type: 
  Country: None (occurrence: None)
  Receive Date: 20060525
  Receipt Date: 20060525
  Transmission Date: 20061013
  Serious: Yes (Disabling, Other)
  Sender: FDA-Public Use
  Company Number: None

PATIENT
  Age: 46 Year
  Sex: Male
  Weight: 74.8435 kg

DRUGS (1)
  1. BALANCED SALT SOLUTION [Suspect]
     Indication: EYE OPERATION
     Dates: start: 20060104, end: 20060105

REACTIONS (3)
  - CATARACT [None]
  - ENDOPHTHALMITIS [None]
  - GLAUCOMA [None]
